FAERS Safety Report 6210423-6 (Version None)
Quarter: 2009Q2

REPORT INFORMATION
  Report Type: 
  Country: None (occurrence: None)
  Receive Date: 20090601
  Receipt Date: 20090522
  Transmission Date: 20091009
  Serious: Yes (Other)
  Sender: FDA-Public Use
  Company Number: A0754111A

PATIENT
  Age: 65 Year
  Sex: Male

DRUGS (2)
  1. WELLBUTRIN [Suspect]
     Dosage: 150MG PER DAY
     Route: 048
     Dates: start: 20081022
  2. METFORMIN [Concomitant]

REACTIONS (1)
  - BLOOD GLUCOSE INCREASED [None]
